FAERS Safety Report 6112999-6 (Version None)
Quarter: 2009Q1

REPORT INFORMATION
  Report Type: 
  Country: None (occurrence: None)
  Receive Date: 20090312
  Receipt Date: 20090303
  Transmission Date: 20090719
  Serious: Yes (Hospitalization)
  Sender: FDA-Public Use
  Company Number: A0770510A

PATIENT
  Age: 57 Year
  Sex: Male
  Weight: 88.2 kg

DRUGS (9)
  1. PAZOPANIB [Suspect]
     Dosage: 400MG PER DAY
     Route: 048
     Dates: start: 20090113, end: 20090224
  2. LAPATINIB [Suspect]
     Dosage: 1000MG PER DAY
     Route: 048
     Dates: start: 20090113, end: 20090224
  3. PACLITAXEL [Suspect]
     Dosage: 80MGM2 WEEKLY
     Route: 042
     Dates: start: 20090113
  4. OXYCONTIN [Concomitant]
     Dosage: 60MG THREE TIMES PER DAY
     Route: 048
  5. CELEXA [Concomitant]
     Dosage: 40MG PER DAY
     Route: 048
  6. TRAZODONE HCL [Concomitant]
     Route: 048
     Dates: end: 20090214
  7. PREVACID [Concomitant]
     Route: 048
  8. CREON [Concomitant]
  9. MULTI-VITAMIN [Concomitant]

REACTIONS (7)
  - CONFUSIONAL STATE [None]
  - DEEP VEIN THROMBOSIS [None]
  - DISEASE PROGRESSION [None]
  - DYSPNOEA [None]
  - GASTROINTESTINAL HAEMORRHAGE [None]
  - PULMONARY EMBOLISM [None]
  - PYREXIA [None]
